FAERS Safety Report 15265563 (Version 3)
Quarter: 2019Q3

REPORT INFORMATION
  Report Type: Spontaneous
  Country: US (occurrence: US)
  Receive Date: 20180810
  Receipt Date: 20190906
  Transmission Date: 20191004
  Serious: No
  Sender: FDA-Public Use
  Company Number: US-VERTEX PHARMACEUTICALS-2017-001638

PATIENT
  Sex: Female

DRUGS (13)
  1. ATROVENT [Concomitant]
     Active Substance: IPRATROPIUM BROMIDE
  2. MUPIROCIN. [Concomitant]
     Active Substance: MUPIROCIN
  3. PULMOSAL [Concomitant]
     Active Substance: SODIUM CHLORIDE
  4. PEG [Concomitant]
     Active Substance: POLYETHYLENE GLYCOLS
  5. NASONEX [Concomitant]
     Active Substance: MOMETASONE FUROATE
  6. ZYRTEC [Concomitant]
     Active Substance: CETIRIZINE HYDROCHLORIDE
  7. AUGMENTIN [Concomitant]
     Active Substance: AMOXICILLIN\CLAVULANATE POTASSIUM
  8. CEFPROZIL. [Concomitant]
     Active Substance: CEFPROZIL
  9. PULMOZYME [Suspect]
     Active Substance: DORNASE ALFA
     Indication: CYSTIC FIBROSIS
     Dosage: 2.5 MG, QD
     Route: 055
     Dates: start: 20150709
  10. PERTZYE [Concomitant]
     Active Substance: PANCRELIPASE AMYLASE\PANCRELIPASE LIPASE\PANCRELIPASE PROTEASE
  11. NEXIUM [Concomitant]
     Active Substance: ESOMEPRAZOLE MAGNESIUM
  12. ORKAMBI [Suspect]
     Active Substance: IVACAFTOR\LUMACAFTOR
     Indication: CYSTIC FIBROSIS
     Dosage: 2 DF (100/125 MG EACH), BID
     Route: 048
     Dates: start: 20170217, end: 20180509
  13. DESMOPRESSIN [Concomitant]
     Active Substance: DESMOPRESSIN

REACTIONS (11)
  - Diet refusal [Not Recovered/Not Resolved]
  - Weight decreased [Recovered/Resolved]
  - Fatigue [Not Recovered/Not Resolved]
  - Chest pain [Recovered/Resolved]
  - Irritability [Not Recovered/Not Resolved]
  - Abnormal faeces [Not Recovered/Not Resolved]
  - Dysphagia [Not Recovered/Not Resolved]
  - Mood swings [Not Recovered/Not Resolved]
  - Palpitations [Unknown]
  - Dyspnoea [Not Recovered/Not Resolved]
  - Infective pulmonary exacerbation of cystic fibrosis [Not Recovered/Not Resolved]

NARRATIVE: CASE EVENT DATE: 2017
